FAERS Safety Report 7736264-6 (Version None)
Quarter: 2011Q3

REPORT INFORMATION
  Report Type: 
  Country: None (occurrence: None)
  Receive Date: 20110908
  Receipt Date: 20110829
  Transmission Date: 20111222
  Serious: Yes (Other)
  Sender: FDA-Public Use
  Company Number: US-BAYER-2011-082613

PATIENT
  Age: 23 Year
  Sex: Female

DRUGS (3)
  1. YAZ [Suspect]
     Dosage: UNK
     Dates: start: 20060701, end: 20091201
  2. YASMIN [Suspect]
     Dosage: UNK
     Dates: start: 20060701, end: 20091201
  3. DROSPIRENONE AND ETHINYL ESTRADIOL [Suspect]
     Dosage: UNK
     Dates: start: 20060701, end: 20091201

REACTIONS (2)
  - CHOLECYSTECTOMY [None]
  - BILIARY COLIC [None]
